FAERS Safety Report 12676766 (Version 1)
Quarter: 2016Q3

REPORT INFORMATION
  Report Type: Spontaneous
  Country: US (occurrence: US)
  Receive Date: 20160823
  Receipt Date: 20160823
  Transmission Date: 20161109
  Serious: No
  Sender: FDA-Public Use
  Company Number: US-MYLANLABS-2016M1028913

PATIENT
  Age: 16 Year
  Sex: Female
  Weight: 83.9 kg

DRUGS (2)
  1. ST. JOHN WORT [Concomitant]
     Dosage: UNK
  2. ECONTRA EZ [Suspect]
     Active Substance: LEVONORGESTREL
     Indication: CONTRACEPTION
     Dosage: UNK, ONCE
     Dates: start: 20160707, end: 20160707

REACTIONS (5)
  - Headache [Recovered/Resolved]
  - Breast tenderness [Not Recovered/Not Resolved]
  - Dizziness [Recovered/Resolved]
  - Nausea [Not Recovered/Not Resolved]
  - Abdominal pain [Recovered/Resolved]

NARRATIVE: CASE EVENT DATE: 20160707
